FAERS Safety Report 5634680-X (Version None)
Quarter: 2008Q1

REPORT INFORMATION
  Report Type: 
  Country: None (occurrence: None)
  Receive Date: 20080222
  Receipt Date: 20080212
  Transmission Date: 20080703
  Serious: Yes (Hospitalization, Other)
  Sender: FDA-Public Use
  Company Number: BR-ABBOTT-08P-020-0434974-00

PATIENT
  Age: 42 Year
  Sex: Female
  Weight: 57 kg

DRUGS (9)
  1. HUMIRA [Suspect]
     Indication: INTESTINAL FISTULA
  2. HUMIRA [Suspect]
     Indication: CROHN'S DISEASE
  3. HUMIRA [Suspect]
  4. WARFARIN SODIUM [Concomitant]
     Indication: DEEP VEIN THROMBOSIS
  5. PREDNISONE TAB [Concomitant]
     Indication: DRUG USE FOR UNKNOWN INDICATION
  6. METRONIDASOLE [Concomitant]
     Indication: DRUG USE FOR UNKNOWN INDICATION
  7. PANTOPRAZOLE [Concomitant]
     Indication: DRUG USE FOR UNKNOWN INDICATION
  8. AZATHIOPRINE [Concomitant]
     Indication: DRUG USE FOR UNKNOWN INDICATION
  9. MESALAMINE [Concomitant]
     Indication: DRUG USE FOR UNKNOWN INDICATION

REACTIONS (5)
  - ATAXIA [None]
  - DIZZINESS [None]
  - FISTULA [None]
  - GAIT DISTURBANCE [None]
  - NYSTAGMUS [None]
